FAERS Safety Report 21402766 (Version 1)
Quarter: 2022Q4

REPORT INFORMATION
  Report Type: Spontaneous
  Country: US (occurrence: US)
  Receive Date: 20221003
  Receipt Date: 20221003
  Transmission Date: 20230112
  Serious: No
  Sender: FDA-Public Use
  Company Number: US-PCCINC-2022-PEL-000563

PATIENT

DRUGS (1)
  1. GABLOFEN [Suspect]
     Active Substance: BACLOFEN
     Indication: Muscle spasticity
     Dosage: 375 MICROGRAM/ DAY
     Route: 037

REACTIONS (1)
  - Withdrawal syndrome [Recovered/Resolved]
